FAERS Safety Report 5281649-3 (Version None)
Quarter: 2007Q1

REPORT INFORMATION
  Report Type: 
  Country: None (occurrence: None)
  Receive Date: 20070330
  Receipt Date: 20070321
  Transmission Date: 20070707
  Serious: Yes (Disabling)
  Sender: FDA-Public Use
  Company Number: SEWYE192626MAR07

PATIENT
  Sex: Female
  Weight: 60 kg

DRUGS (2)
  1. EFFEXOR [Suspect]
     Indication: DEPRESSION
     Route: 048
     Dates: start: 20060803, end: 20061201
  2. PANTOPRAZOLE SODIUM [Concomitant]

REACTIONS (4)
  - AURA [None]
  - DIZZINESS [None]
  - LIP PAIN [None]
  - PARAESTHESIA ORAL [None]
